FAERS Safety Report 14303517 (Version 1)
Quarter: 2017Q4

REPORT INFORMATION
  Report Type: Spontaneous
  Country: US (occurrence: US)
  Receive Date: 20171219
  Receipt Date: 20171219
  Transmission Date: 20180321
  Serious: No
  Sender: FDA-Public Use
  Company Number: None

PATIENT
  Sex: Female

DRUGS (14)
  1. OCALIVA [Suspect]
     Active Substance: OBETICHOLIC ACID
     Indication: BILIARY CIRRHOSIS PRIMARY
     Route: 048
     Dates: start: 20170901
  2. FERROUS SULF [Concomitant]
     Active Substance: FERROUS SULFATE
  3. NEO/POLY/DEX [Concomitant]
     Active Substance: DEXAMETHASONE\NEOMYCIN\POLYMYXIN B SULFATE
  4. ENOXAPARIN [Concomitant]
     Active Substance: ENOXAPARIN
  5. CLOTRIMAZOLE/BETAMETHASONE [Concomitant]
  6. URSODIOL. [Concomitant]
     Active Substance: URSODIOL
  7. HYDROXYZINE [Concomitant]
     Active Substance: HYDROXYZINE HYDROCHLORIDE
  8. ATORVASTATIN [Concomitant]
     Active Substance: ATORVASTATIN
  9. PANTOPRAZOLE [Concomitant]
     Active Substance: PANTOPRAZOLE
  10. WARFARIN [Concomitant]
     Active Substance: WARFARIN
  11. FLUOXETINE [Concomitant]
     Active Substance: FLUOXETINE HYDROCHLORIDE
  12. COLESTIPOL [Concomitant]
     Active Substance: COLESTIPOL
  13. ZOLPIDEM [Concomitant]
     Active Substance: ZOLPIDEM\ZOLPIDEM TARTRATE
  14. FLUOROMETHOL [Concomitant]
     Active Substance: FLUOROMETHOLONE

REACTIONS (4)
  - Dizziness [None]
  - Fatigue [None]
  - Balance disorder [None]
  - Pruritus [None]

NARRATIVE: CASE EVENT DATE: 2017
